FAERS Safety Report 10257630 (Version 1)
Quarter: 2014Q2

REPORT INFORMATION
  Report Type: Spontaneous
  Country: US (occurrence: None)
  Receive Date: 20140623
  Receipt Date: 20140623
  Transmission Date: 20141212
  Serious: Yes (Disabling)
  Sender: FDA-Public Use
  Company Number: None

PATIENT
  Age: 48 Year
  Sex: Female
  Weight: 67.59 kg

DRUGS (1)
  1. SAVELLA [Suspect]
     Indication: COMPLEX REGIONAL PAIN SYNDROME
     Dosage: 100 MG BID, TWICE DAILY, TAKEN BY MOUTH
     Route: 048
     Dates: start: 20140102, end: 20140529

REACTIONS (4)
  - Heart rate increased [None]
  - Aspartate aminotransferase increased [None]
  - Alanine aminotransferase increased [None]
  - Hepatic enzyme increased [None]
